FAERS Safety Report 17478425 (Version 1)
Quarter: 2020Q1

REPORT INFORMATION
  Report Type: Report from Study
  Country: BR (occurrence: BR)
  Receive Date: 20200228
  Receipt Date: 20200228
  Transmission Date: 20200409
  Serious: Yes (Hospitalization, Other)
  Sender: FDA-Public Use
  Company Number: BR-JNJFOC-20191143502

PATIENT
  Sex: Female

DRUGS (1)
  1. SIMPONI [Suspect]
     Active Substance: GOLIMUMAB
     Indication: RHEUMATOID ARTHRITIS
     Route: 058
     Dates: start: 20190109, end: 201907

REACTIONS (5)
  - Appendicitis [Unknown]
  - Lower limb fracture [Unknown]
  - Fall [Unknown]
  - Nosocomial infection [Not Recovered/Not Resolved]
  - Device expulsion [Unknown]

NARRATIVE: CASE EVENT DATE: 2019
